FAERS Safety Report 8127135-4 (Version None)
Quarter: 2012Q1

REPORT INFORMATION
  Report Type: 
  Country: None (occurrence: None)
  Receive Date: 20120210
  Receipt Date: 20120131
  Transmission Date: 20120608
  Serious: Yes (Other)
  Sender: FDA-Public Use
  Company Number: US-ELI_LILLY_AND_COMPANY-US201111006810

PATIENT
  Sex: Female
  Weight: 43.5 kg

DRUGS (2)
  1. FORTEO [Suspect]
     Dosage: 20 UG, QD
     Route: 065
     Dates: start: 20110701
  2. FORTEO [Suspect]
     Indication: OSTEOPOROSIS
     Dosage: 20 UG, QD
     Route: 065
     Dates: start: 20070101

REACTIONS (4)
  - MIGRAINE WITH AURA [None]
  - RETINAL DETACHMENT [None]
  - CHORIORETINOPATHY [None]
  - CHOROIDAL NEOVASCULARISATION [None]
